FAERS Safety Report 18006091 (Version 4)
Quarter: 2021Q2

REPORT INFORMATION
  Report Type: Report from Study
  Country: CA (occurrence: CA)
  Receive Date: 20200709
  Receipt Date: 20210609
  Transmission Date: 20210717
  Serious: Yes (Other)
  Sender: FDA-Public Use
  Company Number: NVSC2020CA159805

PATIENT
  Age: 29 Year
  Sex: Female

DRUGS (5)
  1. ILARIS [Suspect]
     Active Substance: CANAKINUMAB
     Dosage: UNK
     Route: 065
     Dates: start: 20210507
  2. ZANTAC [Concomitant]
     Active Substance: RANITIDINE HYDROCHLORIDE
     Indication: PRODUCT USED FOR UNKNOWN INDICATION
     Dosage: UNK
     Route: 065
  3. ILARIS [Suspect]
     Active Substance: CANAKINUMAB
     Dosage: UNK
     Route: 065
     Dates: start: 20200702
  4. ILARIS [Suspect]
     Active Substance: CANAKINUMAB
     Indication: MUCKLE-WELLS SYNDROME
     Dosage: 150 MG EVERY 8 WEEKS
     Route: 058
     Dates: start: 20200414
  5. XOLAIR [Concomitant]
     Active Substance: OMALIZUMAB
     Indication: PRODUCT USED FOR UNKNOWN INDICATION
     Dosage: 300 MG, OTHER
     Route: 058
     Dates: start: 20190611

REACTIONS (17)
  - Feeling hot [Unknown]
  - Paraesthesia oral [Recovering/Resolving]
  - Cellulitis [Unknown]
  - Angioedema [Unknown]
  - Rash [Unknown]
  - Tongue disorder [Unknown]
  - Oedema [Unknown]
  - Limb injury [Unknown]
  - Pharyngeal paraesthesia [Recovering/Resolving]
  - Swollen tongue [Unknown]
  - Urticaria [Unknown]
  - Erythema [Unknown]
  - Wound secretion [Unknown]
  - Dysgeusia [Unknown]
  - Mouth swelling [Unknown]
  - Infection [Unknown]
  - Skin plaque [Unknown]

NARRATIVE: CASE EVENT DATE: 20210507
